FAERS Safety Report 24303934 (Version 1)
Quarter: 2024Q3

REPORT INFORMATION
  Report Type: Spontaneous
  Country: CN (occurrence: CN)
  Receive Date: 20240910
  Receipt Date: 20240910
  Transmission Date: 20241017
  Serious: Yes (Hospitalization)
  Sender: PFIZER
  Company Number: CN-PFIZER INC-PV202400117405

PATIENT
  Age: 44 Year
  Sex: Female
  Weight: 64 kg

DRUGS (9)
  1. EPIRUBICIN HYDROCHLORIDE [Suspect]
     Active Substance: EPIRUBICIN HYDROCHLORIDE
     Indication: Invasive breast carcinoma
     Dosage: 150 MG, 1X/DAY (CYCLE 1)
     Route: 041
     Dates: start: 20240311, end: 20240311
  2. EPIRUBICIN HYDROCHLORIDE [Suspect]
     Active Substance: EPIRUBICIN HYDROCHLORIDE
     Dosage: 150 MG, 1X/DAY (CYCLE 2)
     Route: 041
     Dates: start: 20240402, end: 20240402
  3. EPIRUBICIN HYDROCHLORIDE [Suspect]
     Active Substance: EPIRUBICIN HYDROCHLORIDE
     Dosage: 150 MG, 1X/DAY (CYCLE 3)
     Route: 041
     Dates: start: 20240423, end: 20240423
  4. EPIRUBICIN HYDROCHLORIDE [Suspect]
     Active Substance: EPIRUBICIN HYDROCHLORIDE
     Dosage: 150 MG, 1X/DAY (CYCLE 4)
     Route: 041
     Dates: start: 20240517, end: 20240517
  5. CYCLOPHOSPHAMIDE [Suspect]
     Active Substance: CYCLOPHOSPHAMIDE
     Indication: Invasive breast carcinoma
     Dosage: 800 MG, 1X/DAY (CYCLE 1)
     Route: 041
     Dates: start: 20240311, end: 20240311
  6. CYCLOPHOSPHAMIDE [Suspect]
     Active Substance: CYCLOPHOSPHAMIDE
     Dosage: 800 MG, 1X/DAY (CYCLE 2)
     Route: 041
     Dates: start: 20240402, end: 20240402
  7. CYCLOPHOSPHAMIDE [Suspect]
     Active Substance: CYCLOPHOSPHAMIDE
     Dosage: 800 MG, 1X/DAY (CYCLE 3)
     Route: 041
     Dates: start: 20240423, end: 20240423
  8. CYCLOPHOSPHAMIDE [Suspect]
     Active Substance: CYCLOPHOSPHAMIDE
     Dosage: 800 MG, 1X/DAY (CYCLE 4)
     Route: 041
     Dates: start: 20240517, end: 20240517
  9. DOCETAXEL [Suspect]
     Active Substance: DOCETAXEL\DOCETAXEL ANHYDROUS
     Indication: Invasive breast carcinoma
     Dosage: 160 MG, 1X/DAY (CYCLE 5)
     Route: 041
     Dates: start: 20240607, end: 20240607

REACTIONS (1)
  - Hepatic function abnormal [Recovering/Resolving]

NARRATIVE: CASE EVENT DATE: 20240607
